FAERS Safety Report 6076483-0 (Version None)
Quarter: 2009Q1

REPORT INFORMATION
  Report Type: 
  Country: None (occurrence: None)
  Receive Date: 20090211
  Receipt Date: 20090129
  Transmission Date: 20090719
  Serious: Yes (Hospitalization)
  Sender: FDA-Public Use
  Company Number: 230594K09USA

PATIENT
  Age: 69 Year
  Sex: Male

DRUGS (6)
  1. REBIF [Suspect]
     Indication: MULTIPLE SCLEROSIS
     Dosage: 44 MCG, 3 IN 1 WEEKS, SUBCUTANEOUS
     Route: 058
     Dates: start: 20030714
  2. ZESTRIL [Concomitant]
  3. HYDROCHLOROTHIAZIDE [Concomitant]
  4. GABAPENTIN [Concomitant]
  5. ATENOLOL [Concomitant]
  6. AMITRIPTYLINE HCL [Concomitant]

REACTIONS (3)
  - BLOOD CHOLESTEROL INCREASED [None]
  - RENAL FAILURE ACUTE [None]
  - TRANSIENT ISCHAEMIC ATTACK [None]
